FAERS Safety Report 5800728-2 (Version None)
Quarter: 2008Q3

REPORT INFORMATION
  Report Type: 
  Country: None (occurrence: None)
  Receive Date: 20080703
  Receipt Date: 20080623
  Transmission Date: 20090109
  Serious: Yes (Hospitalization)
  Sender: FDA-Public Use
  Company Number: BR-ABBOTT-08P-020-0453411-00

PATIENT
  Sex: Male
  Weight: 84 kg

DRUGS (2)
  1. HUMIRA [Suspect]
     Indication: RHEUMATOID ARTHRITIS
     Route: 058
     Dates: start: 20070501
  2. UNKOWN MAGISTRAL FORMULE [Concomitant]
     Indication: RHEUMATOID ARTHRITIS
     Route: 048

REACTIONS (6)
  - BACK PAIN [None]
  - DYSURIA [None]
  - GASTROINTESTINAL DISORDER [None]
  - INFECTION [None]
  - PROSTATE INFECTION [None]
  - PROSTATIC DISORDER [None]
